FAERS Safety Report 19497046 (Version 1)
Quarter: 2021Q3

REPORT INFORMATION
  Report Type: Spontaneous
  Country: US (occurrence: US)
  Receive Date: 20210705
  Receipt Date: 20210705
  Transmission Date: 20211014
  Serious: Yes (Life-Threatening, Hospitalization, Disabling, Other)
  Sender: FDA-Public Use
  Company Number: None

PATIENT
  Age: 22 Year
  Sex: Male
  Weight: 90 kg

DRUGS (7)
  1. OMEPRAZOLE. [Suspect]
     Active Substance: OMEPRAZOLE
  2. DUEXIS [Suspect]
     Active Substance: FAMOTIDINE\IBUPROFEN
  3. SEROQUEL [Suspect]
     Active Substance: QUETIAPINE FUMARATE
  4. GEODON [Suspect]
     Active Substance: ZIPRASIDONE HYDROCHLORIDE\ZIPRASIDONE MESYLATE
     Indication: PRODUCT USED FOR UNKNOWN INDICATION
     Dates: start: 20170101, end: 20200520
  5. WELLBUTRIN XL [Suspect]
     Active Substance: BUPROPION HYDROCHLORIDE
  6. SYMBICORT [Suspect]
     Active Substance: BUDESONIDE\FORMOTEROL FUMARATE DIHYDRATE
  7. CLONAZEPAM. [Suspect]
     Active Substance: CLONAZEPAM

REACTIONS (33)
  - Weight increased [None]
  - COVID-19 [None]
  - Aspartate aminotransferase decreased [None]
  - Alanine aminotransferase decreased [None]
  - Blood cholesterol increased [None]
  - Bladder hypertrophy [None]
  - Low density lipoprotein increased [None]
  - Blood creatine phosphokinase increased [None]
  - Blood urine present [None]
  - Urine ketone body present [None]
  - Speech disorder [None]
  - Anxiety [None]
  - Gastrointestinal disorder [None]
  - Testicular failure [None]
  - Hallucination [None]
  - Neoplasm malignant [None]
  - Dyspnoea [None]
  - Sex hormone binding globulin increased [None]
  - Impaired fasting glucose [None]
  - Haemoptysis [None]
  - Blood triglycerides increased [None]
  - Insomnia [None]
  - Albumin globulin ratio increased [None]
  - Protein urine present [None]
  - Urine calcium [None]
  - Blood urea increased [None]
  - Sexual dysfunction [None]
  - Bacterial test [None]
  - Stress [None]
  - Hyperlipidaemia [None]
  - Fracture [None]
  - Osteoarthritis [None]
  - Vitamin D decreased [None]

NARRATIVE: CASE EVENT DATE: 20160101
